FAERS Safety Report 17116883 (Version 2)
Quarter: 2020Q1

REPORT INFORMATION
  Report Type: Spontaneous
  Country: CL (occurrence: CL)
  Receive Date: 20191205
  Receipt Date: 20200109
  Transmission Date: 20200409
  Serious: Yes (Other)
  Sender: FDA-Public Use
  Company Number: CL-MYLANLABS-2019M1118823

PATIENT
  Age: 91 Year
  Sex: Male

DRUGS (1)
  1. LEPONEX [Suspect]
     Active Substance: CLOZAPINE
     Indication: BIPOLAR DISORDER
     Dosage: 12.5 MILLIGRAM, QD
     Route: 048

REACTIONS (12)
  - Basal cell carcinoma [Recovered/Resolved]
  - Red cell distribution width increased [Recovering/Resolving]
  - Haemoglobin decreased [Not Recovered/Not Resolved]
  - Haematocrit decreased [Not Recovered/Not Resolved]
  - Leukopenia [Unknown]
  - Anisocytosis [Unknown]
  - Red blood cell count decreased [Not Recovered/Not Resolved]
  - Lymphocyte percentage increased [Recovering/Resolving]
  - Monocyte percentage decreased [Unknown]
  - Prostate cancer metastatic [Not Recovered/Not Resolved]
  - Neutrophil percentage decreased [Recovering/Resolving]
  - Off label use [Not Recovered/Not Resolved]

NARRATIVE: CASE EVENT DATE: 20190830
